FAERS Safety Report 10767419 (Version 2)
Quarter: 2015Q2

REPORT INFORMATION
  Report Type: Spontaneous
  Country: US (occurrence: US)
  Receive Date: 20150205
  Receipt Date: 20150422
  Transmission Date: 20150821
  Serious: Yes (Other)
  Sender: FDA-Public Use
  Company Number: US-MYLANLABS-2015M1002509

PATIENT

DRUGS (1)
  1. CIDOFOVIR INJECTION [Suspect]
     Active Substance: CIDOFOVIR
     Dosage: UNK
     Dates: start: 20150122, end: 20150122

REACTIONS (2)
  - Eye burns [Recovered/Resolved]
  - Accidental exposure to product [Recovered/Resolved]

NARRATIVE: CASE EVENT DATE: 20150122
